FAERS Safety Report 13866045 (Version 1)
Quarter: 2017Q3

REPORT INFORMATION
  Report Type: Spontaneous
  Country: US (occurrence: US)
  Receive Date: 20170814
  Receipt Date: 20170814
  Transmission Date: 20171127
  Serious: No
  Sender: FDA-Public Use
  Company Number: US-ROCHE-1852112

PATIENT
  Age: 48 Year
  Sex: Male

DRUGS (6)
  1. LEVOTHYROXIN [Concomitant]
     Active Substance: LEVOTHYROXINE
     Dosage: YES
     Route: 048
  2. VITAMIN D3 [Concomitant]
     Active Substance: CHOLECALCIFEROL
     Route: 048
  3. BENADRYL [Concomitant]
     Active Substance: DIPHENHYDRAMINE HYDROCHLORIDE
     Dosage: THEY DOUBLED THE DOSE OF BENADRYL DURING IV ADMIN ;ONGOING: NO
     Route: 042
     Dates: start: 20161102, end: 20161102
  4. ACTEMRA [Suspect]
     Active Substance: TOCILIZUMAB
     Indication: RHEUMATOID ARTHRITIS
     Dosage: RECEIVED ONE DOSE ONLY
     Route: 041
     Dates: start: 20161102, end: 20161102
  5. FISH OIL VITAMIN [Concomitant]
     Dosage: YES
     Route: 048
  6. TESTIM GEL [Concomitant]
     Dosage: 1% GEL, 50 MG DOSE OF GEL ONCE DAILY ;ONGOING: YES
     Route: 061

REACTIONS (23)
  - Chest pain [Recovered/Resolved]
  - Burning sensation [Not Recovered/Not Resolved]
  - Decreased appetite [Not Recovered/Not Resolved]
  - Painful respiration [Not Recovered/Not Resolved]
  - Nausea [Not Recovered/Not Resolved]
  - Arthralgia [Not Recovered/Not Resolved]
  - Headache [Not Recovered/Not Resolved]
  - Cough [Not Recovered/Not Resolved]
  - Swelling face [Recovered/Resolved]
  - Infrequent bowel movements [Not Recovered/Not Resolved]
  - Dry eye [Unknown]
  - Feeling hot [Recovered/Resolved]
  - Swelling [Recovered/Resolved]
  - Throat irritation [Recovered/Resolved]
  - Pain in extremity [Not Recovered/Not Resolved]
  - Pruritus generalised [Not Recovered/Not Resolved]
  - Vision blurred [Not Recovered/Not Resolved]
  - Peripheral swelling [Recovered/Resolved]
  - Rheumatoid arthritis [Not Recovered/Not Resolved]
  - Abdominal discomfort [Not Recovered/Not Resolved]
  - Vomiting [Recovered/Resolved]
  - Joint swelling [Not Recovered/Not Resolved]
  - Gait disturbance [Not Recovered/Not Resolved]

NARRATIVE: CASE EVENT DATE: 20161102
